FAERS Safety Report 18643123 (Version 1)
Quarter: 2020Q4

REPORT INFORMATION
  Report Type: Spontaneous
  Country: US (occurrence: US)
  Receive Date: 20201221
  Receipt Date: 20201221
  Transmission Date: 20210114
  Serious: Yes (Hospitalization)
  Sender: FDA-Public Use
  Company Number: NVSC2020US338323

PATIENT
  Age: 31 Year
  Sex: Female

DRUGS (2)
  1. OXALIPLATIN. [Suspect]
     Active Substance: OXALIPLATIN
     Indication: HEPATIC CANCER METASTATIC
     Dosage: UNK
     Route: 065
  2. IVOSIDENIB [Suspect]
     Active Substance: IVOSIDENIB
     Indication: HEPATIC CANCER METASTATIC
     Dosage: UNK
     Route: 065

REACTIONS (4)
  - Hepatic cancer metastatic [Unknown]
  - Product use in unapproved indication [Unknown]
  - Pseudocirrhosis [Unknown]
  - Malignant neoplasm progression [Unknown]
